FAERS Safety Report 4384055-9 (Version None)
Quarter: 2004Q2

REPORT INFORMATION
  Report Type: 
  Country: None (occurrence: None)
  Receive Date: 20040621
  Receipt Date: 20040609
  Transmission Date: 20050107
  Serious: Yes (Other)
  Sender: FDA-Public Use
  Company Number: 2004-05-0001

PATIENT
  Sex: Female

DRUGS (1)
  1. AERIUS (DESLORATADINE) TABLETS  'LIKE CLARINEX' [Suspect]
     Indication: ERYTHEMA
     Dosage: SEE IMAGE
     Dates: start: 20040401, end: 20040401

REACTIONS (4)
  - ASTHMA [None]
  - DRUG HYPERSENSITIVITY [None]
  - EYE REDNESS [None]
  - OEDEMA [None]
